FAERS Safety Report 4303464-7 (Version None)
Quarter: 2004Q1

REPORT INFORMATION
  Report Type: 
  Country: None (occurrence: None)
  Receive Date: 20040223
  Receipt Date: 20040212
  Transmission Date: 20041129
  Serious: No
  Sender: FDA-Public Use
  Company Number: 2004UW00682

PATIENT
  Age: 51 Year
  Sex: Female
  Weight: 71.6683 kg

DRUGS (4)
  1. FASLODEX [Suspect]
     Indication: BREAST CANCER
     Dosage: 250 MG MONTH IM
     Route: 030
     Dates: start: 20030422, end: 20040112
  2. CAPECITABINE [Concomitant]
  3. FEMARA [Concomitant]
  4. OXYCONTIN [Concomitant]

REACTIONS (1)
  - HYPERSENSITIVITY [None]
